FAERS Safety Report 4785425-7 (Version None)
Quarter: 2005Q3

REPORT INFORMATION
  Report Type: 
  Country: None (occurrence: None)
  Receive Date: 20050929
  Receipt Date: 20050913
  Transmission Date: 20060218
  Serious: Yes (Disabling)
  Sender: FDA-Public Use
  Company Number: T05-GER-03487-01

PATIENT
  Sex: Female

DRUGS (1)
  1. ESCITALOPRAM OXALATE [Suspect]
     Indication: DEPRESSION

REACTIONS (4)
  - EXCORIATION [None]
  - PRURITUS [None]
  - RASH PAPULAR [None]
  - SKIN ATROPHY [None]
